FAERS Safety Report 5231150-8 (Version None)
Quarter: 2007Q1

REPORT INFORMATION
  Report Type: 
  Country: None (occurrence: None)
  Receive Date: 20070206
  Receipt Date: 20070125
  Transmission Date: 20070707
  Serious: Yes (Hospitalization)
  Sender: FDA-Public Use
  Company Number: GB-ROCHE-480858

PATIENT
  Age: 60 Year
  Sex: Male
  Weight: 88 kg

DRUGS (2)
  1. XENICAL [Suspect]
     Indication: OBESITY
     Route: 048
     Dates: start: 20060823, end: 20061212
  2. UNSPECIFIED DRUG [Concomitant]

REACTIONS (3)
  - FACIAL BONES FRACTURE [None]
  - HYPOTENSION [None]
  - SYNCOPE [None]
